FAERS Safety Report 9656112 (Version 2)
Quarter: 2013Q4

REPORT INFORMATION
  Report Type: Report from Study
  Country: CA (occurrence: CA)
  Receive Date: 20131030
  Receipt Date: 20131101
  Transmission Date: 20140711
  Serious: Yes (Hospitalization)
  Sender: FDA-Public Use
  Company Number: PHHY2013CA122326

PATIENT
  Age: 64 Year
  Sex: Male

DRUGS (5)
  1. CLOZARIL [Suspect]
     Indication: SCHIZOPHRENIA
     Dosage: 150 MG IN MORNING, 380 MG AT NIGHT
     Route: 048
     Dates: start: 20031010
  2. ROSUVASTATIN [Concomitant]
     Dosage: UNK UKN, UNK
  3. OLANZAPIN [Concomitant]
     Dosage: UNK UKN, UNK
  4. ZOPICLONE [Concomitant]
     Dosage: UNK UKN, UNK
  5. SERTRALINE [Concomitant]
     Dosage: UNK UKN, UNK
     Dates: start: 20031010

REACTIONS (1)
  - Urinary retention [Recovering/Resolving]
